FAERS Safety Report 7321314-1 (Version None)
Quarter: 2011Q1

REPORT INFORMATION
  Report Type: 
  Country: None (occurrence: None)
  Receive Date: 20110228
  Receipt Date: 20100218
  Transmission Date: 20110831
  Serious: No
  Sender: FDA-Public Use
  Company Number: US-PFIZER INC-2010003151

PATIENT
  Age: 52 Year
  Sex: Female

DRUGS (1)
  1. GEODON [Suspect]
     Indication: BIPOLAR II DISORDER
     Dosage: 40 MG, 2X/DAY

REACTIONS (1)
  - RASH MACULO-PAPULAR [None]
